FAERS Safety Report 23889542 (Version 1)
Quarter: 2024Q2

REPORT INFORMATION
  Report Type: Other
  Country: US (occurrence: None)
  Receive Date: 20240523
  Receipt Date: 20240523
  Transmission Date: 20240716
  Serious: Yes (Other)
  Sender: FDA-Public Use
  Company Number: US-ROCHE-2619388

PATIENT

DRUGS (2)
  1. ACTEMRA [Suspect]
     Active Substance: TOCILIZUMAB
     Indication: COVID-19
     Route: 065
  2. HYDROXYCHLOROQUINE [Concomitant]
     Active Substance: HYDROXYCHLOROQUINE

REACTIONS (9)
  - Pneumonia staphylococcal [Unknown]
  - Pneumonia pseudomonal [Unknown]
  - Pneumonia escherichia [Unknown]
  - Pneumonia klebsiella [Unknown]
  - Pneumonia serratia [Unknown]
  - Stenotrophomonas maltophilia pneumonia [Unknown]
  - Superinfection [Unknown]
  - Haematological infection [Unknown]
  - Off label use [Unknown]
